FAERS Safety Report 15599216 (Version 9)
Quarter: 2021Q1

REPORT INFORMATION
  Report Type: Spontaneous
  Country: IN (occurrence: IN)
  Receive Date: 20181108
  Receipt Date: 20210122
  Transmission Date: 20210419
  Serious: Yes (Other)
  Sender: FDA-Public Use
  Company Number: IN-PFIZER INC-2018455082

PATIENT
  Age: 55 Year
  Sex: Female

DRUGS (6)
  1. PALBACE [Suspect]
     Active Substance: PALBOCICLIB
     Dosage: 125 MG, OD FOR 21 DAYS AND THEN 7 DAYS OFF
     Dates: start: 20201216
  2. LETROZOLE. [Concomitant]
     Active Substance: LETROZOLE
     Dosage: UNK
  3. PALBACE [Suspect]
     Active Substance: PALBOCICLIB
     Dosage: 125 MG, CYCLIC (1?0?0 X 3 WEEKS ON AND 1 WEEK OFF TO CONTINUE)
     Dates: start: 20201204
  4. PALBACE [Suspect]
     Active Substance: PALBOCICLIB
     Indication: BREAST CANCER METASTATIC
     Dosage: 125 MG, 1X/DAY
     Route: 048
     Dates: start: 20171202
  5. FULVESTRANT. [Concomitant]
     Active Substance: FULVESTRANT
     Dosage: UNK
  6. SHELCAL [CALCIUM;COLECALCIFEROL] [Concomitant]
     Active Substance: CALCIUM\CHOLECALCIFEROL
     Dosage: 500 MG, 1X/DAY (1?0?0 CONTINUE)
     Dates: start: 20201204

REACTIONS (10)
  - Haematochezia [Unknown]
  - Headache [Unknown]
  - Blood creatinine decreased [Unknown]
  - Haemorrhage [Unknown]
  - Cerebral disorder [Unknown]
  - Neoplasm progression [Unknown]
  - Pain [Unknown]
  - Neck pain [Unknown]
  - Second primary malignancy [Unknown]
  - Adenocarcinoma [Unknown]

NARRATIVE: CASE EVENT DATE: 20181215
